FAERS Safety Report 24925727 (Version 4)
Quarter: 2025Q1

REPORT INFORMATION
  Report Type: Spontaneous
  Country: JP (occurrence: JP)
  Receive Date: 20250204
  Receipt Date: 20250306
  Transmission Date: 20250408
  Serious: Yes (Hospitalization, Other)
  Sender: ASTELLAS
  Company Number: JP-ASTELLAS-2025-AER-005587

PATIENT
  Age: 65 Year
  Sex: Male

DRUGS (5)
  1. PADCEV [Suspect]
     Active Substance: ENFORTUMAB VEDOTIN-EJFV
     Indication: Metastatic carcinoma of the bladder
     Route: 065
     Dates: start: 202404, end: 202412
  2. CARBOPLATIN [Concomitant]
     Active Substance: CARBOPLATIN
     Indication: Metastatic carcinoma of the bladder
     Route: 065
  3. 5% glucose solution [Concomitant]
     Indication: Product used for unknown indication
     Route: 065
  4. ISOTONIC SODIUM CHLORIDE SOLUTION [Concomitant]
     Active Substance: SODIUM CHLORIDE
     Indication: Product used for unknown indication
     Route: 065
  5. GEMCITABINE [Concomitant]
     Active Substance: GEMCITABINE
     Indication: Metastatic carcinoma of the bladder
     Route: 065

REACTIONS (18)
  - Metastases to bone [Unknown]
  - Immune system disorder [Unknown]
  - Gait disturbance [Unknown]
  - Weight decreased [Recovered/Resolved]
  - Decreased appetite [Unknown]
  - Cancer pain [Unknown]
  - Insomnia [Unknown]
  - Fatigue [Unknown]
  - Bacterial infection [Unknown]
  - C-reactive protein increased [Unknown]
  - Alopecia [Unknown]
  - Pyrexia [Recovered/Resolved]
  - Malaise [Unknown]
  - Apathy [Unknown]
  - Physical deconditioning [Unknown]
  - Male sexual dysfunction [Unknown]
  - Mental fatigue [Unknown]
  - Fatigue [Unknown]

NARRATIVE: CASE EVENT DATE: 20241101
